FAERS Safety Report 6845920-3 (Version None)
Quarter: 2010Q3

REPORT INFORMATION
  Report Type: 
  Country: None (occurrence: None)
  Receive Date: 20100715
  Receipt Date: 20070830
  Transmission Date: 20110219
  Serious: No
  Sender: FDA-Public Use
  Company Number: US-PFIZER INC-2007074017

PATIENT
  Sex: Female

DRUGS (13)
  1. CHANTIX [Suspect]
     Indication: SMOKING CESSATION THERAPY
     Route: 048
     Dates: start: 20070823, end: 20070828
  2. SMZ-TMP DS [Concomitant]
  3. ATENOLOL [Concomitant]
  4. ESTRADIOL [Concomitant]
  5. HYDROCODONE [Concomitant]
  6. BENTYL [Concomitant]
  7. TRAZODONE HYDROCHLORIDE [Concomitant]
  8. CLONAZEPAM [Concomitant]
  9. CELEXA [Concomitant]
  10. VESICARE [Concomitant]
     Indication: HYPERTONIC BLADDER
  11. PRENATAL VITAMINS [Concomitant]
  12. CALCIUM [Concomitant]
  13. VITAMIN B6 [Concomitant]

REACTIONS (3)
  - ABDOMINAL PAIN [None]
  - HYPOAESTHESIA [None]
  - MUSCLE SPASMS [None]
